FAERS Safety Report 20416817 (Version 1)
Quarter: 2022Q1

REPORT INFORMATION
  Report Type: Spontaneous
  Country: US (occurrence: US)
  Receive Date: 20220202
  Receipt Date: 20220202
  Transmission Date: 20220424
  Serious: Yes (Hospitalization, Other)
  Sender: FDA-Public Use
  Company Number: US-PFIZER INC-202200128352

PATIENT
  Age: 56 Year
  Sex: Female

DRUGS (6)
  1. MILRINONE [Suspect]
     Active Substance: MILRINONE
     Indication: Cardiomyopathy
     Dosage: UNK
     Route: 042
  2. BUMETANIDE [Concomitant]
     Active Substance: BUMETANIDE
     Dosage: UNK
  3. SPIRONOLACTONE [Concomitant]
     Active Substance: SPIRONOLACTONE
     Indication: Cardiomyopathy
     Dosage: UNK
  4. METOLAZONE [Concomitant]
     Active Substance: METOLAZONE
     Indication: Cardiomyopathy
     Dosage: UNK
  5. IVABRADINE [Concomitant]
     Active Substance: IVABRADINE
     Indication: Cardiomyopathy
     Dosage: UNK
  6. DIGOXIN [Concomitant]
     Active Substance: DIGOXIN
     Indication: Cardiomyopathy
     Dosage: UNK

REACTIONS (2)
  - Long QT syndrome [Recovered/Resolved]
  - Arrhythmia [Recovered/Resolved]
